FAERS Safety Report 4895868-9 (Version None)
Quarter: 2005Q4

REPORT INFORMATION
  Report Type: 
  Country: None (occurrence: None)
  Receive Date: 20051220
  Receipt Date: 20050907
  Transmission Date: 20060501
  Serious: Yes (Other)
  Sender: FDA-Public Use
  Company Number: 413474

PATIENT
  Age: 70 Year
  Sex: Female

DRUGS (2)
  1. BONIVA [Suspect]
     Indication: OSTEOPOROSIS
     Dosage: 150 MG 1 PER MONTH ORAL
     Route: 048
     Dates: start: 20050701, end: 20050801
  2. BENICAR [Concomitant]

REACTIONS (4)
  - ABDOMINAL TENDERNESS [None]
  - ASTHENIA [None]
  - DIARRHOEA [None]
  - NAUSEA [None]
